FAERS Safety Report 7001698-4 (Version None)
Quarter: 2010Q3

REPORT INFORMATION
  Report Type: 
  Country: None (occurrence: None)
  Receive Date: 20100920
  Receipt Date: 20100908
  Transmission Date: 20110219
  Serious: Yes (Hospitalization, Other)
  Sender: FDA-Public Use
  Company Number: PL-PFIZER INC-2006067894

PATIENT
  Age: 45 Year
  Sex: Male
  Weight: 102 kg

DRUGS (5)
  1. SUNITINIB MALATE [Suspect]
     Indication: RENAL CELL CARCINOMA
     Dosage: 50 MG, 1X/DAY
     Route: 048
     Dates: start: 20060202
  2. KETONAL [Concomitant]
     Route: 048
     Dates: start: 20060309, end: 20060414
  3. PRIDINOL MESILATE [Concomitant]
     Route: 048
     Dates: start: 20060309, end: 20060422
  4. AMLOZEK [Concomitant]
     Route: 048
     Dates: start: 20060413, end: 20060422
  5. HYDROCHLOROTHIAZIDE [Concomitant]
     Route: 048
     Dates: start: 20060413, end: 20060422

REACTIONS (2)
  - BACK PAIN [None]
  - HYPOTONIA [None]
